FAERS Safety Report 4649516-3 (Version None)
Quarter: 2005Q2

REPORT INFORMATION
  Report Type: 
  Country: None (occurrence: None)
  Receive Date: 20050427
  Receipt Date: 20050411
  Transmission Date: 20051028
  Serious: Yes (Hospitalization)
  Sender: FDA-Public Use
  Company Number: 2005-UK-00598UK

PATIENT
  Age: 81 Year
  Sex: Female

DRUGS (2)
  1. PRAMIPEXOLE (UK) (PRAMIPEXOLE DIHYDROCHLORIDE) (NR) (PRAMIPEXOLE) [Suspect]
     Indication: PARKINSON'S DISEASE
     Dosage: 250 MG TYHREE TIMES DAILY (250 PO
     Route: 048
     Dates: start: 20050101
  2. ATENOLOL [Concomitant]

REACTIONS (2)
  - BLISTER [None]
  - CIRCULATORY COLLAPSE [None]
